FAERS Safety Report 7576243-5 (Version None)
Quarter: 2011Q2

REPORT INFORMATION
  Report Type: 
  Country: None (occurrence: None)
  Receive Date: 20110628
  Receipt Date: 20091107
  Transmission Date: 20111010
  Serious: Yes (Other)
  Sender: FDA-Public Use
  Company Number: US-BAYER-200938968NA

PATIENT
  Age: 67 Year
  Sex: Female
  Weight: 49.887 kg

DRUGS (6)
  1. PREVACID [Concomitant]
  2. TRASYLOL [Suspect]
     Indication: PERICARDIAL OPERATION
  3. TRASYLOL [Suspect]
     Indication: CORONARY ARTERY BYPASS
     Dosage: UNK
     Route: 042
     Dates: start: 20050829
  4. TRASYLOL [Suspect]
     Indication: PERICARDIOTOMY
  5. LASIX [Concomitant]
  6. VICODIN [Concomitant]

REACTIONS (11)
  - ANXIETY [None]
  - STRESS [None]
  - EMOTIONAL DISTRESS [None]
  - CARDIAC ARREST [None]
  - UNEVALUABLE EVENT [None]
  - FEAR [None]
  - RENAL IMPAIRMENT [None]
  - RENAL INJURY [None]
  - INJURY [None]
  - RENAL FAILURE [None]
  - PAIN [None]
